FAERS Safety Report 23023387 (Version 2)
Quarter: 2023Q4

REPORT INFORMATION
  Report Type: Report from Study
  Country: US (occurrence: US)
  Receive Date: 20231003
  Receipt Date: 20231103
  Transmission Date: 20240110
  Serious: Yes (Hospitalization)
  Sender: FDA-Public Use
  Company Number: US-ABBVIE-5432077

PATIENT
  Sex: Female

DRUGS (1)
  1. IMBRUVICA [Suspect]
     Active Substance: IBRUTINIB
     Indication: Follicular lymphoma
     Dosage: LAST ADMIN DATE: 2023
     Route: 048
     Dates: start: 202308

REACTIONS (2)
  - Hospitalisation [Unknown]
  - Product administration error [Recovering/Resolving]

NARRATIVE: CASE EVENT DATE: 20230101
